FAERS Safety Report 7259719-X (Version None)
Quarter: 2011Q1

REPORT INFORMATION
  Report Type: 
  Country: None (occurrence: None)
  Receive Date: 20110130
  Receipt Date: 20101007
  Transmission Date: 20110831
  Serious: No
  Sender: FDA-Public Use
  Company Number: US-ABBOTT-10P-163-0659121-00

PATIENT
  Sex: Female
  Weight: 58.112 kg

DRUGS (12)
  1. HUMIRA [Suspect]
     Indication: ANKYLOSING SPONDYLITIS
     Route: 058
     Dates: start: 20100601
  2. PREDNISONE [Concomitant]
     Indication: PRODUCT USED FOR UNKNOWN INDICATION
     Route: 048
  3. FOLIC ACID [Concomitant]
     Indication: PRODUCT USED FOR UNKNOWN INDICATION
  4. DILAUDID [Concomitant]
     Indication: SURGERY
     Dosage: VIA PAIN PUMP
     Route: 050
  5. SULFASALAZINE [Concomitant]
     Indication: ANKYLOSING SPONDYLITIS
     Route: 048
  6. UNKNOWN MEDICATION [Concomitant]
     Indication: HYPERTENSION
  7. DILAUDID [Concomitant]
     Indication: PAIN
  8. FENTANYL [Concomitant]
     Indication: PAIN
     Dosage: VIA PUMP
  9. CYMBALTA [Concomitant]
     Indication: DEPRESSION
  10. CLONAPINE [Concomitant]
     Indication: ANXIETY
  11. UNKNOWN MEDICATION [Concomitant]
  12. URIC ACID [Concomitant]
     Indication: ANKYLOSING SPONDYLITIS

REACTIONS (5)
  - INJECTION SITE PAIN [None]
  - HYPERTENSION [None]
  - PAIN [None]
  - MOBILITY DECREASED [None]
  - DRUG INEFFECTIVE [None]
